FAERS Safety Report 6399323-9 (Version None)
Quarter: 2009Q4

REPORT INFORMATION
  Report Type: 
  Country: None (occurrence: None)
  Receive Date: 20091014
  Receipt Date: 20080414
  Transmission Date: 20100525
  Serious: Yes (Other)
  Sender: FDA-Public Use
  Company Number: US-ASTRAZENECA-2007UW27701

PATIENT
  Age: 11513 Day
  Sex: Female
  Weight: 100.2 kg

DRUGS (4)
  1. SEROQUEL [Suspect]
     Indication: BIPOLAR DISORDER
     Route: 048
     Dates: start: 20020601
  2. SEROQUEL [Suspect]
     Dosage: 100-200MG
     Route: 048
     Dates: start: 20021113
  3. PROZAC [Concomitant]
     Dates: start: 20021114
  4. DEPAKOTE [Concomitant]
     Dosage: 500 MG, 2 TABLETS AT NIGHT
     Dates: start: 20020101

REACTIONS (5)
  - DIABETES MELLITUS [None]
  - DIABETES MELLITUS INADEQUATE CONTROL [None]
  - DIABETIC NEPHROPATHY [None]
  - METABOLIC SYNDROME [None]
  - TYPE 2 DIABETES MELLITUS [None]
